FAERS Safety Report 8159668-9 (Version None)
Quarter: 2012Q1

REPORT INFORMATION
  Report Type: 
  Country: None (occurrence: None)
  Receive Date: 20120223
  Receipt Date: 20120220
  Transmission Date: 20120608
  Serious: Yes (Other)
  Sender: FDA-Public Use
  Company Number: US-ROCHE-1042122

PATIENT

DRUGS (2)
  1. GEFITINIB [Suspect]
     Indication: RENAL CELL CARCINOMA
     Route: 048
  2. PEGINTERFERON ALFA-2A [Suspect]
     Indication: RENAL CELL CARCINOMA
     Route: 058

REACTIONS (17)
  - ACNE [None]
  - RENAL FAILURE [None]
  - HYPONATRAEMIA [None]
  - BLOOD ALBUMIN DECREASED [None]
  - HYPOTENSION [None]
  - HYPERGLYCAEMIA [None]
  - ATRIAL FIBRILLATION [None]
  - INTERNATIONAL NORMALISED RATIO INCREASED [None]
  - DEHYDRATION [None]
  - DYSPNOEA [None]
  - NAUSEA [None]
  - ASPARTATE AMINOTRANSFERASE INCREASED [None]
  - HYPOKALAEMIA [None]
  - BONE MARROW FAILURE [None]
  - FATIGUE [None]
  - DECREASED APPETITE [None]
  - ALANINE AMINOTRANSFERASE INCREASED [None]
